FAERS Safety Report 7742799-2 (Version None)
Quarter: 2011Q3

REPORT INFORMATION
  Report Type: 
  Country: None (occurrence: None)
  Receive Date: 20110831
  Receipt Date: 20110819
  Transmission Date: 20111222
  Serious: Yes (Disabling, Other)
  Sender: FDA-Public Use
  Company Number: 2003-07-0663

PATIENT
  Age: 45 Year
  Sex: Male
  Weight: 81.1939 kg

DRUGS (8)
  1. NEXIUM [Concomitant]
  2. PEG-INTRON [Suspect]
     Indication: HEPATITIS C
     Dosage: 150 MCG; QW; SC
     Route: 058
     Dates: start: 20020228, end: 20060226
  3. NEUMEGA [Suspect]
     Indication: RED BLOOD CELL ABNORMALITY
     Dates: start: 20020228
  4. ENSURE [Concomitant]
  5. REBETOL [Suspect]
     Indication: HEPATITIS C
     Dosage: ;QW;     ;QD;
     Dates: start: 20020228, end: 20020601
  6. REBETOL [Suspect]
     Indication: HEPATITIS C
     Dosage: ;QW;     ;QD;
     Dates: start: 20020228, end: 20030123
  7. REBETOL [Suspect]
     Indication: HEPATITIS C
     Dosage: ;QW;     ;QD;
     Dates: start: 20020601, end: 20030123
  8. MULTI-VITAMINS [Concomitant]

REACTIONS (27)
  - EATING DISORDER [None]
  - VISION BLURRED [None]
  - RENAL PAIN [None]
  - PLATELET COUNT DECREASED [None]
  - DEPRESSION [None]
  - GAIT DISTURBANCE [None]
  - ABDOMINAL PAIN UPPER [None]
  - UNEVALUABLE EVENT [None]
  - HEADACHE [None]
  - CHEST PAIN [None]
  - ERECTILE DYSFUNCTION [None]
  - INAPPROPRIATE SCHEDULE OF DRUG ADMINISTRATION [None]
  - HYPOAESTHESIA [None]
  - FEELING ABNORMAL [None]
  - THROMBOSIS [None]
  - SKIN DISCOLOURATION [None]
  - INCORRECT DOSE ADMINISTERED [None]
  - ARTHRALGIA [None]
  - DYSARTHRIA [None]
  - MUSCLE ATROPHY [None]
  - BALANCE DISORDER [None]
  - DYSPEPSIA [None]
  - CARDIOVASCULAR DISORDER [None]
  - HYPOTHYROIDISM [None]
  - WEIGHT DECREASED [None]
  - TUMOUR MARKER INCREASED [None]
  - PALPITATIONS [None]
